FAERS Safety Report 5703580-9 (Version None)
Quarter: 2008Q2

REPORT INFORMATION
  Report Type: 
  Country: None (occurrence: None)
  Receive Date: 20080409
  Receipt Date: 20080327
  Transmission Date: 20081010
  Serious: Yes (Other)
  Sender: FDA-Public Use
  Company Number: US023121

PATIENT
  Age: 55 Year
  Sex: Male
  Weight: 121.1104 kg

DRUGS (15)
  1. PROVIGIL [Suspect]
     Indication: SOMNOLENCE
     Dosage: 100 MG QD ORAL
     Route: 048
     Dates: start: 20080305, end: 20080309
  2. PLAVIX [Concomitant]
  3. ALDACTONE [Concomitant]
  4. COREG [Concomitant]
  5. FISH OIL [Concomitant]
  6. GABAPENTIN [Concomitant]
  7. FOBLIC [Concomitant]
  8. UROXATRAL [Concomitant]
  9. EFFEXOR XR [Concomitant]
  10. ALTACE [Concomitant]
  11. LEXAPRO [Concomitant]
  12. VYTORIN [Concomitant]
  13. NIASPAN [Concomitant]
  14. NORCO [Concomitant]
  15. DIAZEPAM [Concomitant]

REACTIONS (11)
  - BALANCE DISORDER [None]
  - BLOOD PRESSURE FLUCTUATION [None]
  - DIZZINESS [None]
  - DREAMY STATE [None]
  - FALL [None]
  - FEELING JITTERY [None]
  - HEADACHE [None]
  - JOINT INJURY [None]
  - MYOCARDITIS [None]
  - NERVOUSNESS [None]
  - PHOTOPHOBIA [None]
